FAERS Safety Report 14940283 (Version 1)
Quarter: 2018Q2

REPORT INFORMATION
  Report Type: Report from Study
  Country: NL (occurrence: NL)
  Receive Date: 20180525
  Receipt Date: 20180525
  Transmission Date: 20180711
  Serious: Yes (Hospitalization, Other)
  Sender: FDA-Public Use
  Company Number: NL-SA-2018SA139171

PATIENT
  Sex: Female
  Weight: 80 kg

DRUGS (12)
  1. BACLOFEN. [Concomitant]
     Active Substance: BACLOFEN
     Dosage: 20 MG, BID
     Route: 065
  2. ASCAL [ACETYLSALICYLATE CALCIUM] [Concomitant]
     Dosage: 100 MG, QD
     Route: 065
     Dates: start: 201804, end: 20180419
  3. METOCLOPRAMIDE. [Concomitant]
     Active Substance: METOCLOPRAMIDE
     Dosage: 10 MG, BID
     Route: 065
  4. PANTOPRAZOLE [Concomitant]
     Active Substance: PANTOPRAZOLE
     Dosage: 40 MG, 1X
     Route: 065
  5. SIMVASTATINE [Concomitant]
     Active Substance: SIMVASTATIN
     Dosage: 40 MG, 1X
     Route: 065
  6. OXAZEPAM. [Concomitant]
     Active Substance: OXAZEPAM
     Dosage: 10 MG, 3X
     Route: 065
  7. TEMAZEPAM. [Concomitant]
     Active Substance: TEMAZEPAM
     Dosage: 10 MG, 1X
     Route: 065
  8. CLOPIDOGREL [Concomitant]
     Active Substance: CLOPIDOGREL BISULFATE
     Dosage: 75 MG, 1X
     Route: 065
  9. CLOMIPRAMINE [Concomitant]
     Active Substance: CLOMIPRAMINE
     Dosage: 112.5 MG, 1X
     Route: 065
  10. ALGLUCOSIDASE ALFA [Suspect]
     Active Substance: ALGLUCOSIDASE ALFA
     Indication: GLYCOGEN STORAGE DISEASE TYPE II
     Dosage: 20 MG/KG, QOW
     Route: 041
     Dates: start: 20100503
  11. AMLODIPINE [Concomitant]
     Active Substance: AMLODIPINE BESYLATE
     Dosage: 5 MG, 1X
     Route: 065
  12. MOVICOLON [Concomitant]
     Active Substance: POLYETHYLENE GLYCOL 3350\POTASSIUM CHLORIDE\SODIUM BICARBONATE\SODIUM CHLORIDE
     Dosage: 1 DF, 1X
     Route: 065

REACTIONS (6)
  - Cerebral infarction [Unknown]
  - Fall [Recovering/Resolving]
  - Dizziness [Recovering/Resolving]
  - Subarachnoid haemorrhage [Unknown]
  - Cerebral ischaemia [Unknown]
  - Gait disturbance [Unknown]

NARRATIVE: CASE EVENT DATE: 201711
